FAERS Safety Report 8803442 (Version 4)
Quarter: 2014Q2

REPORT INFORMATION
  Report Type: Report from Study
  Country: DE (occurrence: DE)
  Receive Date: 20120924
  Receipt Date: 20140626
  Transmission Date: 20141212
  Serious: Yes (Hospitalization)
  Sender: FDA-Public Use
  Company Number: DE-MPIJNJ-2012-05947

PATIENT
  Sex: 0

DRUGS (3)
  1. VELCADE [Suspect]
     Indication: PLASMA CELL MYELOMA
     Dosage: 1.3 MG/M2, CYCLIC
     Route: 058
     Dates: start: 20120705, end: 20120913
  2. DOXORUBICIN [Concomitant]
     Indication: PLASMA CELL MYELOMA
     Dosage: 15 MG, UNK
     Route: 042
     Dates: start: 20120705, end: 20120813
  3. DEXAMETHASONE [Concomitant]
     Indication: PLASMA CELL MYELOMA
     Dosage: 40 MG, UNK
     Route: 048
     Dates: start: 20120705

REACTIONS (1)
  - Clostridial infection [Recovered/Resolved]
